FAERS Safety Report 5735767-3 (Version None)
Quarter: 2008Q2

REPORT INFORMATION
  Report Type: 
  Country: None (occurrence: None)
  Receive Date: 20080513
  Receipt Date: 20080502
  Transmission Date: 20081010
  Serious: Yes (Other)
  Sender: FDA-Public Use
  Company Number: GB-JNJFOC-20080501082

PATIENT
  Sex: Male

DRUGS (2)
  1. TMC125 [Suspect]
     Route: 048
  2. TMC125 [Suspect]
     Indication: HIV INFECTION
     Route: 048

REACTIONS (2)
  - ARTHRALGIA [None]
  - MYALGIA [None]
